FAERS Safety Report 5233024-5 (Version None)
Quarter: 2007Q1

REPORT INFORMATION
  Report Type: 
  Country: None (occurrence: None)
  Receive Date: 20070207
  Receipt Date: 20070126
  Transmission Date: 20070707
  Serious: Yes (Hospitalization, Other)
  Sender: FDA-Public Use
  Company Number: JP-PFIZER INC-2006143841

PATIENT
  Sex: Male
  Weight: 57 kg

DRUGS (6)
  1. LIPITOR [Suspect]
     Indication: HYPERLIPIDAEMIA
     Route: 048
     Dates: start: 20011003, end: 20061111
  2. AMARYL [Concomitant]
     Route: 048
  3. ALL OTHER THERAPEUTIC PRODUCTS [Concomitant]
  4. SYMMETREL [Concomitant]
     Route: 048
     Dates: start: 20010903, end: 20061111
  5. PANALDINE [Concomitant]
     Route: 048
     Dates: start: 20010903, end: 20061111
  6. ARICEPT [Concomitant]
     Route: 048
     Dates: start: 20011003

REACTIONS (8)
  - ANOREXIA [None]
  - C-REACTIVE PROTEIN INCREASED [None]
  - DEMENTIA [None]
  - DEPRESSED LEVEL OF CONSCIOUSNESS [None]
  - RENAL FAILURE ACUTE [None]
  - RHABDOMYOLYSIS [None]
  - URINARY INCONTINENCE [None]
  - WHITE BLOOD CELL COUNT INCREASED [None]
